FAERS Safety Report 15756815 (Version 1)
Quarter: 2018Q4

REPORT INFORMATION
  Report Type: Spontaneous
  Country: AU (occurrence: AU)
  Receive Date: 20181224
  Receipt Date: 20181224
  Transmission Date: 20190205
  Serious: Yes (Life-Threatening, Other)
  Sender: FDA-Public Use
  Company Number: AU-ASTRAZENECA-2018SF56621

PATIENT
  Age: 67 Year
  Sex: Female
  Weight: 65 kg

DRUGS (3)
  1. OSIMERTINIB. [Suspect]
     Active Substance: OSIMERTINIB
     Indication: NON-SMALL CELL LUNG CANCER
     Dosage: 80.0MG UNKNOWN
     Route: 048
     Dates: start: 201708, end: 201811
  2. ARIMIDEX [Concomitant]
     Active Substance: ANASTROZOLE
     Dosage: FOR 5 YRS
  3. TAXOL [Concomitant]
     Active Substance: PACLITAXEL

REACTIONS (10)
  - Cardiac failure congestive [Recovering/Resolving]
  - Systolic dysfunction [Unknown]
  - Dyspnoea [Unknown]
  - Left ventricular dysfunction [Recovering/Resolving]
  - Cough [Unknown]
  - Cardiac dysfunction [Unknown]
  - Respiratory alkalosis [Unknown]
  - Dizziness [Unknown]
  - Pleural effusion [Unknown]
  - Palpitations [Unknown]
